FAERS Safety Report 8078851-4 (Version None)
Quarter: 2012Q1

REPORT INFORMATION
  Report Type: 
  Country: None (occurrence: None)
  Receive Date: 20120124
  Receipt Date: 20120109
  Transmission Date: 20120608
  Serious: Yes (Death)
  Sender: FDA-Public Use
  Company Number: JPI-P-014829

PATIENT
  Age: 31 Year
  Sex: Female

DRUGS (9)
  1. OPIOIDS [Suspect]
     Indication: PRODUCT USED FOR UNKNOWN INDICATION
     Dates: end: 20070115
  2. XYREM [Suspect]
     Indication: CATAPLEXY
     Dosage: 4.5 GM (2.25 GM,2 IN 1 D),ORAL  6 GM (3 GM,2 IN 1 D),ORAL
     Route: 048
     Dates: start: 20061114, end: 20070115
  3. XYREM [Suspect]
     Indication: CATAPLEXY
     Dosage: 4.5 GM (2.25 GM,2 IN 1 D),ORAL  6 GM (3 GM,2 IN 1 D),ORAL
     Route: 048
     Dates: start: 20060608
  4. ANESTHETICS AND THERAPEUTIC GASES [Suspect]
     Indication: PRODUCT USED FOR UNKNOWN INDICATION
     Dates: end: 20070115
  5. OXYCODONE HCL [Concomitant]
  6. PSYCHODYSLEPTICS [Suspect]
     Indication: PRODUCT USED FOR UNKNOWN INDICATION
     Dates: end: 20070115
  7. UNSPECIFIED ANTIDEPRESSANT [Concomitant]
  8. MODAFINIL [Concomitant]
  9. NARCOTICS [Suspect]
     Indication: PRODUCT USED FOR UNKNOWN INDICATION
     Dates: end: 20070115

REACTIONS (4)
  - POISONING [None]
  - MENTAL DISORDER [None]
  - INTENTIONAL DRUG MISUSE [None]
  - ABNORMAL BEHAVIOUR [None]
